FAERS Safety Report 7355032-0 (Version None)
Quarter: 2011Q1

REPORT INFORMATION
  Report Type: 
  Country: None (occurrence: None)
  Receive Date: 20110316
  Receipt Date: 20110307
  Transmission Date: 20110831
  Serious: Yes (Hospitalization)
  Sender: FDA-Public Use
  Company Number: US-NOVOPROD-322489

PATIENT
  Age: 59 Year
  Sex: Female

DRUGS (8)
  1. ASPIRIN [Concomitant]
     Indication: PRODUCT USED FOR UNKNOWN INDICATION
  2. POTASSIUM [Concomitant]
     Indication: PRODUCT USED FOR UNKNOWN INDICATION
  3. HYDRALAZINE [Concomitant]
     Indication: PRODUCT USED FOR UNKNOWN INDICATION
  4. NORVASC [Concomitant]
     Indication: PRODUCT USED FOR UNKNOWN INDICATION
  5. LASIX [Concomitant]
     Indication: PRODUCT USED FOR UNKNOWN INDICATION
  6. LOPRESSOR [Concomitant]
     Indication: PRODUCT USED FOR UNKNOWN INDICATION
  7. LEVEMIR [Suspect]
     Indication: TYPE 2 DIABETES MELLITUS
     Dosage: 15 U IN AM, 20 U IN PM
     Route: 058
     Dates: start: 20101201
  8. LISINOPRIL [Concomitant]
     Indication: PRODUCT USED FOR UNKNOWN INDICATION

REACTIONS (1)
  - CHOLESTASIS [None]
